FAERS Safety Report 23145033 (Version 2)
Quarter: 2023Q4

REPORT INFORMATION
  Report Type: Spontaneous
  Country: CN (occurrence: CN)
  Receive Date: 20231103
  Receipt Date: 20231117
  Transmission Date: 20240109
  Serious: Yes (Other)
  Sender: FDA-Public Use
  Company Number: CN-ABBVIE-5465793

PATIENT
  Age: 35 Year
  Sex: Female

DRUGS (2)
  1. ACITRETIN [Suspect]
     Active Substance: ACITRETIN
     Indication: Palmoplantar pustulosis
     Dosage: 20 MILLIGRAM DAILY; 20 MILLIGRAM
     Route: 065
  2. ADALIMUMAB [Suspect]
     Active Substance: ADALIMUMAB\ISOPROPYL ALCOHOL
     Indication: Palmoplantar pustulosis
     Dosage: 40 MILLIGRAM ONCE A WEEK
     Route: 058

REACTIONS (3)
  - Anaphylactic reaction [Unknown]
  - Urticaria [Unknown]
  - Therapeutic product effect decreased [Unknown]
